FAERS Safety Report 21065258 (Version 1)
Quarter: 2022Q3

REPORT INFORMATION
  Report Type: Spontaneous
  Country: MY (occurrence: MY)
  Receive Date: 20220711
  Receipt Date: 20220711
  Transmission Date: 20221027
  Serious: Yes (Death, Other)
  Sender: FDA-Public Use
  Company Number: None

PATIENT
  Age: 76 Year
  Sex: Male

DRUGS (1)
  1. IOPAMIRO [Suspect]
     Active Substance: IOPAMIDOL
     Indication: Computerised tomogram
     Dosage: 100 ML
     Route: 042

REACTIONS (5)
  - Unresponsive to stimuli [Fatal]
  - Pupil fixed [Fatal]
  - Pulse absent [Fatal]
  - Blood pressure immeasurable [Fatal]
  - Cardiac arrest [Fatal]
